FAERS Safety Report 16499732 (Version 6)
Quarter: 2022Q1

REPORT INFORMATION
  Report Type: Report from Study
  Country: PT (occurrence: PT)
  Receive Date: 20190701
  Receipt Date: 20220316
  Transmission Date: 20220423
  Serious: Yes (Life-Threatening, Hospitalization, Other)
  Sender: FDA-Public Use
  Company Number: PT-AUROBINDO-AUR-APL-2019-037117

PATIENT
  Age: 59 Year
  Sex: Male

DRUGS (4)
  1. IBUPROFEN [Suspect]
     Active Substance: IBUPROFEN
     Indication: Gout
     Dosage: UNK UNK, ONCE A DAY (HIGH DOSE)
     Route: 065
  2. IBUPROFEN [Suspect]
     Active Substance: IBUPROFEN
     Indication: Gouty arthritis
  3. INDOMETHACIN [Suspect]
     Active Substance: INDOMETHACIN
     Indication: Gout
     Dosage: UNK, DAILY (HIGH DOSE)
     Route: 065
  4. INDOMETHACIN [Suspect]
     Active Substance: INDOMETHACIN
     Indication: Gouty arthritis

REACTIONS (5)
  - Hyperkalaemia [Recovered/Resolved]
  - Cardiac arrest [Recovered/Resolved]
  - Metabolic acidosis [Recovered/Resolved]
  - Intentional product misuse [Unknown]
  - Drug abuse [Unknown]
